FAERS Safety Report 14122966 (Version 1)
Quarter: 2017Q4

REPORT INFORMATION
  Report Type: Spontaneous
  Country: US (occurrence: US)
  Receive Date: 20171024
  Receipt Date: 20171024
  Transmission Date: 20180321
  Serious: Yes (Hospitalization)
  Sender: FDA-Public Use
  Company Number: None

PATIENT
  Sex: Female
  Weight: 69.3 kg

DRUGS (3)
  1. MELOXICAM. [Suspect]
     Active Substance: MELOXICAM
     Indication: BACK PAIN
     Dosage: ?          QUANTITY:30 TABLET(S);?
     Route: 048
     Dates: start: 20170322, end: 20170406
  2. HYDROCODON [Concomitant]
     Active Substance: HYDROCODONE
  3. ASPERIN ESOTERIC [Concomitant]

REACTIONS (4)
  - Chest pain [None]
  - Hypoaesthesia [None]
  - Cerebrovascular accident [None]
  - Dyspnoea [None]

NARRATIVE: CASE EVENT DATE: 20170406
